FAERS Safety Report 17873619 (Version 1)
Quarter: 2020Q2

REPORT INFORMATION
  Report Type: Spontaneous
  Country: CA (occurrence: CA)
  Receive Date: 20200609
  Receipt Date: 20200609
  Transmission Date: 20200714
  Serious: Yes (Other)
  Sender: FDA-Public Use
  Company Number: CA-AUROBINDO-AUR-APL-2020-027351

PATIENT
  Sex: Female
  Weight: 43 kg

DRUGS (1)
  1. CEPHALEXIN. [Suspect]
     Active Substance: CEPHALEXIN
     Indication: BACTERIAL INFECTION
     Dosage: 500 MILLIGRAM, FOUR TIMES/DAY
     Route: 048

REACTIONS (1)
  - Suicidal ideation [Unknown]
